FAERS Safety Report 8848808 (Version 1)
Quarter: 2012Q4

REPORT INFORMATION
  Report Type: Spontaneous
  Country: FR (occurrence: None)
  Receive Date: 20121015
  Receipt Date: 20121015
  Transmission Date: 20130627
  Serious: Yes (Other)
  Sender: FDA-Public Use
  Company Number: DSA_60095_2012

PATIENT
  Age: 75 Year
  Sex: Female

DRUGS (1)
  1. XENAZINE [Suspect]
     Indication: DYSKINESIA
     Dates: start: 19971104, end: 19971224

REACTIONS (3)
  - Parkinsonism [None]
  - Somnolence [None]
  - Salivary hypersecretion [None]
